FAERS Safety Report 8616747-7 (Version None)
Quarter: 2012Q3

REPORT INFORMATION
  Report Type: 
  Country: None (occurrence: None)
  Receive Date: 20120823
  Receipt Date: 20120803
  Transmission Date: 20120928
  Serious: No
  Sender: FDA-Public Use
  Company Number: US-009507513-1207USA000451

PATIENT

DRUGS (3)
  1. PEG-INTRON [Suspect]
  2. INTRON A [Suspect]
     Indication: HEPATITIS C
     Dosage: 5 MG, QW
     Route: 058
     Dates: start: 20010101, end: 20120101
  3. TELAPREVIR [Suspect]

REACTIONS (3)
  - INCORRECT STORAGE OF DRUG [None]
  - OVERDOSE [None]
  - HEPATITIS C RNA INCREASED [None]
